FAERS Safety Report 20845154 (Version 4)
Quarter: 2022Q4

REPORT INFORMATION
  Report Type: Spontaneous
  Country: JP (occurrence: JP)
  Receive Date: 20220518
  Receipt Date: 20221128
  Transmission Date: 20230112
  Serious: Yes (Other)
  Sender: FDA-Public Use
  Company Number: JP-GSKJP-JP2022JPN077579

PATIENT
  Sex: Female

DRUGS (2)
  1. BOTOX [Suspect]
     Active Substance: ONABOTULINUMTOXINA
     Indication: Hypertonic bladder
     Dosage: 100 UNITS, SINGLE
     Route: 030
     Dates: start: 20211018, end: 20211018
  2. LEVOFLOXACIN [Concomitant]
     Active Substance: LEVOFLOXACIN
     Indication: Infection prophylaxis
     Dosage: 500 MG, QD
     Route: 048
     Dates: start: 20211017, end: 20211021

REACTIONS (7)
  - Haemorrhage [Recovered/Resolved]
  - Haemorrhage urinary tract [Recovered/Resolved]
  - Urinary bladder haematoma [Recovered/Resolved]
  - Condition aggravated [Recovered/Resolved]
  - Haematuria [Recovered/Resolved]
  - Dysuria [Recovered/Resolved]
  - Incontinence [Recovered/Resolved]

NARRATIVE: CASE EVENT DATE: 20211018
